FAERS Safety Report 8257454-2 (Version None)
Quarter: 2012Q2

REPORT INFORMATION
  Report Type: 
  Country: None (occurrence: None)
  Receive Date: 20120403
  Receipt Date: 20120326
  Transmission Date: 20120825
  Serious: Yes (Other)
  Sender: FDA-Public Use
  Company Number: VE-ROCHE-1054965

PATIENT
  Sex: Female

DRUGS (3)
  1. XOLAIR [Suspect]
     Indication: ASTHMA
  2. XOLAIR [Suspect]
     Indication: HYPERSENSITIVITY
     Dates: start: 20101123
  3. FORADIL [Concomitant]

REACTIONS (4)
  - PAIN [None]
  - INFLUENZA [None]
  - SINUSITIS [None]
  - INJECTION SITE PAIN [None]
